FAERS Safety Report 5140299-X (Version None)
Quarter: 2006Q4

REPORT INFORMATION
  Report Type: 
  Country: None (occurrence: None)
  Receive Date: 20061031
  Receipt Date: 20061018
  Transmission Date: 20070319
  Serious: Yes (Hospitalization)
  Sender: FDA-Public Use
  Company Number: JP-JPN-A200604383

PATIENT
  Age: 72 Year
  Sex: Female
  Weight: 39 kg

DRUGS (9)
  1. PAXIL [Suspect]
     Indication: DEPRESSION
     Route: 048
     Dates: start: 20061014
  2. UNKNOWN DRUG [Concomitant]
     Indication: SCHIZOPHRENIA
     Dosage: 9MG PER DAY
     Route: 048
  3. ARTANE [Concomitant]
     Indication: PARKINSONISM
     Dosage: .3MG PER DAY
     Route: 048
  4. LASIX [Concomitant]
     Indication: HYPERTENSION
     Dosage: 20MG PER DAY
     Route: 048
  5. POTASSIUM GLUCONATE TAB [Concomitant]
     Dosage: 2.5MEQ PER DAY
     Route: 048
  6. UNKNOWN DRUG [Concomitant]
     Indication: BRADYCARDIA
     Dosage: 60MG PER DAY
     Route: 048
  7. CETAPRIL [Concomitant]
     Indication: HYPERTENSION
     Dosage: 50MG PER DAY
     Route: 048
  8. RYTHMODAN [Concomitant]
     Indication: ARRHYTHMIA
     Dosage: 150MG PER DAY
     Route: 048
  9. GASMOTIN [Concomitant]
     Dosage: 15MG PER DAY
     Route: 048
     Dates: start: 20061010, end: 20061017

REACTIONS (8)
  - ASTHENIA [None]
  - BLOOD OSMOLARITY DECREASED [None]
  - BLOOD SODIUM DECREASED [None]
  - DEHYDRATION [None]
  - HYPONATRAEMIA [None]
  - INAPPROPRIATE ANTIDIURETIC HORMONE SECRETION [None]
  - OEDEMA [None]
  - SWELLING FACE [None]
